FAERS Safety Report 19779429 (Version 1)
Quarter: 2021Q3

REPORT INFORMATION
  Report Type: Spontaneous
  Country: CN (occurrence: CN)
  Receive Date: 20210902
  Receipt Date: 20210902
  Transmission Date: 20211014
  Serious: Yes (Life-Threatening, Hospitalization, Other)
  Sender: FDA-Public Use
  Company Number: CN-GLAXOSMITHKLINE-CNCH2021APC059234

PATIENT
  Age: 54 Year
  Sex: Female
  Weight: 56 kg

DRUGS (1)
  1. IBUPROFEN. [Suspect]
     Active Substance: IBUPROFEN
     Indication: HEADACHE
     Dosage: 0.4 G, BID
     Route: 048
     Dates: start: 20210820, end: 20210823

REACTIONS (8)
  - Impaired gastric emptying [Recovering/Resolving]
  - Duodenal ulcer [Recovering/Resolving]
  - Syncope [Recovering/Resolving]
  - Blood urea increased [Recovering/Resolving]
  - Haematochezia [Recovering/Resolving]
  - Faeces discoloured [Recovering/Resolving]
  - Duodenal ulcer haemorrhage [Recovering/Resolving]
  - Discoloured vomit [Recovering/Resolving]

NARRATIVE: CASE EVENT DATE: 20210823
